FAERS Safety Report 7794066-9 (Version None)
Quarter: 2011Q4

REPORT INFORMATION
  Report Type: 
  Country: None (occurrence: None)
  Receive Date: 20111004
  Receipt Date: 20110922
  Transmission Date: 20120403
  Serious: Yes (Hospitalization)
  Sender: FDA-Public Use
  Company Number: US-JNJFOC-20110910096

PATIENT
  Sex: Male
  Weight: 127.01 kg

DRUGS (3)
  1. MULTI-VITAMIN [Concomitant]
     Indication: NUTRITIONAL SUPPORT
     Route: 048
  2. REMICADE [Suspect]
     Indication: PSORIATIC ARTHROPATHY
     Route: 042
     Dates: start: 20110501
  3. LISINOPRIL [Concomitant]
     Indication: HYPERTENSION
     Route: 048
     Dates: end: 20110801

REACTIONS (4)
  - BLOOD PRESSURE DECREASED [None]
  - NEPHROLITHIASIS [None]
  - AMNESIA [None]
  - EUPHORIC MOOD [None]
